FAERS Safety Report 21811286 (Version 3)
Quarter: 2023Q1

REPORT INFORMATION
  Report Type: Spontaneous
  Country: US (occurrence: US)
  Receive Date: 20230103
  Receipt Date: 20230111
  Transmission Date: 20230417
  Serious: No
  Sender: FDA-Public Use
  Company Number: US-PFIZER INC-202201398170

PATIENT
  Sex: Female

DRUGS (6)
  1. PAXLOVID [Interacting]
     Active Substance: NIRMATRELVIR\RITONAVIR
     Indication: COVID-19 treatment
     Dosage: UNK
  2. PANTOPRAZOLE [Interacting]
     Active Substance: PANTOPRAZOLE
     Indication: Gastrooesophageal reflux disease
     Dosage: 40 MG
  3. FUROSEMIDE [Interacting]
     Active Substance: FUROSEMIDE
     Dosage: 20 MG
  4. ELIQUIS [Interacting]
     Active Substance: APIXABAN
     Dosage: 2.5 MG, 2X/DAY
  5. TRULICITY [Interacting]
     Active Substance: DULAGLUTIDE
     Dosage: UNK, WEEKLY ( 0.5 ONCE A WEEK)
  6. LOSARTAN [Interacting]
     Active Substance: LOSARTAN
     Indication: Blood pressure abnormal
     Dosage: 50 MG, 1X/DAY

REACTIONS (4)
  - Rash pruritic [Unknown]
  - Potentiating drug interaction [Unknown]
  - Skin exfoliation [Unknown]
  - Blister [Unknown]
